FAERS Safety Report 8103412-8 (Version None)
Quarter: 2012Q1

REPORT INFORMATION
  Report Type: 
  Country: None (occurrence: None)
  Receive Date: 20120127
  Receipt Date: 20120119
  Transmission Date: 20120608
  Serious: No
  Sender: FDA-Public Use
  Company Number: 2012SP003874

PATIENT
  Sex: Female

DRUGS (1)
  1. SAPHRIS [Suspect]
     Indication: PRODUCT USED FOR UNKNOWN INDICATION
     Dosage: 5 MG; SL, 10 MG; HS; SL
     Route: 060
     Dates: start: 20120115, end: 20120116

REACTIONS (1)
  - SWOLLEN TONGUE [None]
